FAERS Safety Report 4430726-5 (Version None)
Quarter: 2004Q3

REPORT INFORMATION
  Report Type: 
  Country: None (occurrence: None)
  Receive Date: 20040818
  Receipt Date: 20040816
  Transmission Date: 20050211
  Serious: Yes (Hospitalization)
  Sender: FDA-Public Use
  Company Number: 2004AP03211

PATIENT
  Age: 61 Year
  Sex: Female

DRUGS (21)
  1. IRESSA [Suspect]
     Indication: BREAST CANCER
     Dosage: 250 MG DAILY PO
     Route: 048
     Dates: start: 20040405, end: 20040505
  2. IRESSA [Suspect]
     Indication: BREAST CANCER
     Dosage: 250 MG DAILY PO
     Route: 048
     Dates: start: 20040511, end: 20040519
  3. IRESSA [Suspect]
     Indication: BREAST CANCER
     Dosage: 250 MG DAILY PO
     Route: 048
     Dates: start: 20040531, end: 20040606
  4. IRESSA [Suspect]
     Indication: BREAST CANCER
     Dosage: 250 MG DAILY PO
     Route: 048
     Dates: start: 20040607, end: 20040615
  5. DOCETAXEL [Suspect]
     Indication: BREAST CANCER
     Dosage: 66, 66,66, 65, 65,64, 63,63 MG IV
     Route: 042
     Dates: start: 20040405, end: 20040405
  6. DOCETAXEL [Suspect]
     Indication: BREAST CANCER
     Dosage: 66, 66,66, 65, 65,64, 63,63 MG IV
     Route: 042
     Dates: start: 20040414, end: 20040414
  7. DOCETAXEL [Suspect]
     Indication: BREAST CANCER
     Dosage: 66, 66,66, 65, 65,64, 63,63 MG IV
     Route: 042
     Dates: start: 20040421, end: 20040421
  8. DOCETAXEL [Suspect]
     Indication: BREAST CANCER
     Dosage: 66, 66,66, 65, 65,64, 63,63 MG IV
     Route: 042
     Dates: start: 20040428, end: 20040428
  9. DOCETAXEL [Suspect]
     Indication: BREAST CANCER
     Dosage: 66, 66,66, 65, 65,64, 63,63 MG IV
     Route: 042
     Dates: start: 20040512, end: 20040512
  10. DOCETAXEL [Suspect]
     Indication: BREAST CANCER
     Dosage: 66, 66,66, 65, 65,64, 63,63 MG IV
     Route: 042
     Dates: start: 20040526, end: 20040526
  11. DOCETAXEL [Suspect]
     Indication: BREAST CANCER
     Dosage: 66, 66,66, 65, 65,64, 63,63 MG IV
     Route: 042
     Dates: start: 20040604, end: 20040604
  12. DOCETAXEL [Suspect]
     Indication: BREAST CANCER
     Dosage: 66, 66,66, 65, 65,64, 63,63 MG IV
     Route: 042
     Dates: start: 20040611, end: 20040611
  13. DOCETAXEL [Suspect]
     Indication: BREAST CANCER
     Dosage: 66, 66,66, 65, 65,64, 63,63 MG IV
     Route: 042
     Dates: start: 20040625, end: 20040625
  14. DURAGESIC [Concomitant]
  15. VIOXX [Concomitant]
  16. OXYNORM [Concomitant]
  17. ZOFRAN [Concomitant]
  18. ACETAMINOPHEN [Concomitant]
  19. HALDOL [Concomitant]
  20. AZIFRAN [Concomitant]
  21. LOSEC [Concomitant]

REACTIONS (8)
  - DIARRHOEA [None]
  - DYSURIA [None]
  - FATIGUE [None]
  - HYPOKALAEMIA [None]
  - NAUSEA [None]
  - NEUROPATHY [None]
  - RASH [None]
  - VOMITING [None]
